FAERS Safety Report 6355690-3 (Version None)
Quarter: 2009Q3

REPORT INFORMATION
  Report Type: 
  Country: None (occurrence: None)
  Receive Date: 20090910
  Receipt Date: 20090902
  Transmission Date: 20100115
  Serious: Yes (Other)
  Sender: FDA-Public Use
  Company Number: 2009AL005847

PATIENT
  Sex: Male

DRUGS (1)
  1. DIAZEPAM [Suspect]
     Dosage: 10 MG

REACTIONS (2)
  - DRUG DEPENDENCE [None]
  - SUICIDE ATTEMPT [None]
